FAERS Safety Report 5340580-5 (Version None)
Quarter: 2007Q2

REPORT INFORMATION
  Report Type: 
  Country: None (occurrence: None)
  Receive Date: 20070531
  Receipt Date: 20070524
  Transmission Date: 20071010
  Serious: Yes (Hospitalization, Other)
  Sender: FDA-Public Use
  Company Number: FR-PFIZER INC-A211318

PATIENT
  Sex: Male
  Weight: 4.12 kg

DRUGS (1)
  1. ATARAX [Suspect]
     Indication: ANXIETY
     Dosage: DAILY DOSE:112.5MG
     Route: 064

REACTIONS (6)
  - ATRIAL SEPTAL DEFECT [None]
  - DRUG EXPOSURE DURING PREGNANCY [None]
  - DRUG WITHDRAWAL SYNDROME [None]
  - GRAND MAL CONVULSION [None]
  - HYPOTONIA [None]
  - TRICUSPID VALVE INCOMPETENCE [None]
